FAERS Safety Report 5764072-4 (Version None)
Quarter: 2008Q2

REPORT INFORMATION
  Report Type: 
  Country: None (occurrence: None)
  Receive Date: 20080606
  Receipt Date: 20080606
  Transmission Date: 20081010
  Serious: No
  Sender: FDA-Public Use
  Company Number: None

PATIENT
  Age: 38 Year
  Sex: Male
  Weight: 83 kg

DRUGS (2)
  1. METHOCARBAMOL [Suspect]
     Indication: MUSCLE SPASMS
     Dosage: 750G IVPB Q8H
     Route: 042
     Dates: start: 20080512
  2. METHOCARBAMOL [Suspect]
     Indication: MUSCLE SPASMS
     Dosage: 750G IVPB Q8H
     Route: 042
     Dates: start: 20080527

REACTIONS (1)
  - PRURITUS [None]
